FAERS Safety Report 22147293 (Version 1)
Quarter: 2023Q1

REPORT INFORMATION
  Report Type: Spontaneous
  Country: IN (occurrence: IN)
  Receive Date: 20230328
  Receipt Date: 20230328
  Transmission Date: 20230417
  Serious: Yes (Other)
  Sender: FDA-Public Use
  Company Number: IN-MYLANLABS-2023M1032704

PATIENT
  Age: 49 Year
  Sex: Female

DRUGS (1)
  1. AMLODIPINE [Suspect]
     Active Substance: AMLODIPINE BESYLATE
     Indication: Hypertension
     Dosage: 2.5 MILLIGRAM
     Route: 065

REACTIONS (6)
  - Noninfective gingivitis [Recovering/Resolving]
  - Periodontitis [Recovering/Resolving]
  - Bone loss [Recovering/Resolving]
  - Oral disorder [Recovering/Resolving]
  - Gingival bleeding [Recovering/Resolving]
  - Gingival hypertrophy [Recovering/Resolving]
